FAERS Safety Report 6607416-3 (Version None)
Quarter: 2010Q1

REPORT INFORMATION
  Report Type: 
  Country: None (occurrence: None)
  Receive Date: 20100301
  Receipt Date: 20100217
  Transmission Date: 20100710
  Serious: Yes (Hospitalization)
  Sender: FDA-Public Use
  Company Number: IN-ELI_LILLY_AND_COMPANY-IN201002001003

PATIENT
  Sex: Female
  Weight: 75 kg

DRUGS (7)
  1. GEMCITABINE HCL [Suspect]
     Indication: BREAST CANCER METASTATIC
     Dosage: 1000 MG/M2 (2000MG), ON D1 + 8 EVERY 3 WEEKS
     Route: 042
     Dates: start: 20100125, end: 20100201
  2. VINFLUNINE [Suspect]
     Indication: BREAST CANCER METASTATIC
     Dosage: 320 MG/M2, ON D1 EVERY 3 WEEKS
     Route: 042
     Dates: start: 20100125
  3. DUPHALAC [Concomitant]
     Dosage: UNK, UNK
     Dates: start: 20100124, end: 20100126
  4. PANTOPRAZOLE [Concomitant]
     Dosage: UNK, UNK
     Dates: start: 20100125, end: 20100126
  5. DEXAMETHASONE [Concomitant]
     Dates: start: 20100125, end: 20100127
  6. GRANISETRON [Concomitant]
     Dates: start: 20100125, end: 20100125
  7. DOMPERIDONE [Concomitant]
     Dosage: UNK, UNK
     Dates: start: 20100126, end: 20100126

REACTIONS (2)
  - ILEUS PARALYTIC [None]
  - NEUTROPENIC COLITIS [None]
